FAERS Safety Report 18913048 (Version 1)
Quarter: 2021Q1

REPORT INFORMATION
  Report Type: Spontaneous
  Country: ES (occurrence: ES)
  Receive Date: 20210218
  Receipt Date: 20210218
  Transmission Date: 20210420
  Serious: No
  Sender: FDA-Public Use
  Company Number: ES-TOLMAR, INC.-21ES025455

PATIENT
  Sex: Male

DRUGS (1)
  1. IMIQUIMOD. [Suspect]
     Active Substance: IMIQUIMOD
     Indication: ANORECTAL DISORDER
     Dosage: UNK, 3/WEEK
     Route: 061

REACTIONS (2)
  - Anal pruritus [Unknown]
  - Proctalgia [Unknown]
